FAERS Safety Report 6893996-X (Version None)
Quarter: 2010Q3

REPORT INFORMATION
  Report Type: 
  Country: None (occurrence: None)
  Receive Date: 20100802
  Receipt Date: 20100722
  Transmission Date: 20110219
  Serious: Yes (Other)
  Sender: FDA-Public Use
  Company Number: US-RB-013100-10

PATIENT
  Sex: Male

DRUGS (1)
  1. DELSYM [Suspect]
     Dosage: PATIENT TOOK 800MG (APPROXIMATELY 130ML) RECREATIONALLY.
     Route: 048
     Dates: start: 20100701

REACTIONS (4)
  - DRUG ABUSE [None]
  - HEART RATE INCREASED [None]
  - HYPOAESTHESIA [None]
  - VOMITING [None]
